FAERS Safety Report 9378839 (Version 2)
Quarter: 2013Q3

REPORT INFORMATION
  Report Type: Spontaneous
  Country: US (occurrence: US)
  Receive Date: 20130702
  Receipt Date: 20130712
  Transmission Date: 20140515
  Serious: No
  Sender: FDA-Public Use
  Company Number: US-PFIZER INC-2013192199

PATIENT
  Age: 71 Year
  Sex: Male
  Weight: 84.81 kg

DRUGS (4)
  1. VIAGRA [Suspect]
     Indication: ERECTILE DYSFUNCTION
     Dosage: UNK
  2. VIAGRA [Suspect]
     Dosage: 650 MG, UNK
  3. VIAGRA [Suspect]
     Dosage: 6 PILLS, UNK
  4. AVAPRO [Concomitant]
     Indication: HYPERTENSION
     Dosage: 150 MG, 1X/DAY

REACTIONS (2)
  - Drug ineffective [Unknown]
  - Incorrect dose administered [Unknown]
